FAERS Safety Report 8049159-8 (Version None)
Quarter: 2012Q1

REPORT INFORMATION
  Report Type: 
  Country: None (occurrence: None)
  Receive Date: 20120117
  Receipt Date: 20120111
  Transmission Date: 20120608
  Serious: No
  Sender: FDA-Public Use
  Company Number: US-JNJFOC-20120104504

PATIENT
  Sex: Female
  Weight: 71.67 kg

DRUGS (2)
  1. WELLBUTRIN [Concomitant]
     Indication: DEPRESSION
     Route: 048
  2. FENTANYL-100 [Suspect]
     Indication: NECK PAIN
     Route: 062
     Dates: start: 20110101

REACTIONS (8)
  - FEELING COLD [None]
  - WRONG TECHNIQUE IN DRUG USAGE PROCESS [None]
  - CONSTIPATION [None]
  - INSOMNIA [None]
  - FEELING HOT [None]
  - DRUG INEFFECTIVE [None]
  - DRUG ADMINISTERED AT INAPPROPRIATE SITE [None]
  - HYPERHIDROSIS [None]
